FAERS Safety Report 22086567 (Version 1)
Quarter: 2023Q1

REPORT INFORMATION
  Report Type: Spontaneous
  Country: US (occurrence: US)
  Receive Date: 20230312
  Receipt Date: 20230312
  Transmission Date: 20230418
  Serious: Yes (Other)
  Sender: FDA-Public Use
  Company Number: US-002147023-NVSC2023US050560

PATIENT
  Sex: Male
  Weight: 113 kg

DRUGS (24)
  1. ARZERRA [Suspect]
     Active Substance: OFATUMUMAB
     Indication: Product used for unknown indication
     Dosage: UNK
     Route: 065
  2. RITUXAN [Suspect]
     Active Substance: RITUXIMAB
     Indication: Product used for unknown indication
     Dosage: UNK
     Route: 065
     Dates: start: 2012
  3. IBRUTINIB [Suspect]
     Active Substance: IBRUTINIB
     Indication: Product used for unknown indication
     Dosage: UNK
     Route: 048
     Dates: start: 201406
  4. VENCLEXTA [Suspect]
     Active Substance: VENETOCLAX
     Indication: Product used for unknown indication
     Dosage: 400 MG, QD
     Route: 048
     Dates: start: 201811
  5. SULFAMETHOXAZOLE AND TRIMETHOPRIM [Concomitant]
     Active Substance: SULFAMETHOXAZOLE\TRIMETHOPRIM
     Indication: Product used for unknown indication
     Dosage: UNK (800 TO 160 MG)
     Route: 065
  6. OXEPA [Concomitant]
     Indication: Product used for unknown indication
     Dosage: UNK
     Route: 065
  7. MAGNESIUM CITRATE [Concomitant]
     Active Substance: MAGNESIUM CITRATE
     Indication: Product used for unknown indication
     Dosage: 100 MG
     Route: 065
  8. ASCORBIC ACID [Concomitant]
     Active Substance: ASCORBIC ACID
     Indication: Product used for unknown indication
     Dosage: 500 MG
     Route: 065
  9. TRAMADOL [Concomitant]
     Active Substance: TRAMADOL
     Indication: Product used for unknown indication
     Dosage: 50 MG
     Route: 065
  10. CHOLECALCIFEROL [Concomitant]
     Active Substance: CHOLECALCIFEROL
     Indication: Product used for unknown indication
     Dosage: 50 MCG (2000 UNIT)
     Route: 065
  11. LUTEIN [Concomitant]
     Active Substance: LUTEIN
     Indication: Product used for unknown indication
     Dosage: 20 MG
     Route: 065
  12. VITAMIN B12 [Concomitant]
     Active Substance: CYANOCOBALAMIN
     Indication: Product used for unknown indication
     Dosage: UNK (500-400 MCG)
     Route: 065
  13. GLUCOSAMINE [Concomitant]
     Active Substance: GLUCOSAMINE
     Indication: Product used for unknown indication
     Dosage: UNK
     Route: 065
  14. DICLOFENAC [Concomitant]
     Active Substance: DICLOFENAC
     Indication: Product used for unknown indication
     Dosage: UNK
     Route: 065
  15. TRAZODONE HCL [Concomitant]
     Active Substance: TRAZODONE HYDROCHLORIDE
     Indication: Product used for unknown indication
     Dosage: 100 MG, QD
     Route: 065
  16. FOLIC ACID [Concomitant]
     Active Substance: FOLIC ACID
     Indication: Product used for unknown indication
     Dosage: UNK (500 MCG- 400 MCG)
     Route: 065
  17. OLMESARTAN MEDOXOMIL [Concomitant]
     Active Substance: OLMESARTAN MEDOXOMIL
     Indication: Product used for unknown indication
     Dosage: 20 MG
     Route: 065
  18. PRASTERONE [Concomitant]
     Active Substance: PRASTERONE
     Indication: Product used for unknown indication
     Dosage: 50 MG, QD
     Route: 065
  19. ALBUTEROL SULFATE [Concomitant]
     Active Substance: ALBUTEROL SULFATE
     Indication: Product used for unknown indication
     Dosage: UNK (ACTUATION HFA AEROSOL INHALER)
     Route: 065
  20. CHONDROITIN SULFATE (BOVINE) [Concomitant]
     Active Substance: CHONDROITIN SULFATE (BOVINE)
     Indication: Product used for unknown indication
     Dosage: UNK
     Route: 065
  21. AZELASTINE HYDROCHLORIDE [Concomitant]
     Active Substance: AZELASTINE HYDROCHLORIDE
     Indication: Product used for unknown indication
     Dosage: 0.1 % (AEROSOL SPRAY)
     Route: 065
  22. BIOTIN [Concomitant]
     Active Substance: BIOTIN
     Indication: Product used for unknown indication
     Dosage: 5 MG, QD
     Route: 065
  23. ALLOPURINOL [Concomitant]
     Active Substance: ALLOPURINOL
     Indication: Product used for unknown indication
     Dosage: UNK
     Route: 065
  24. PROPRANOLOL [Concomitant]
     Active Substance: PROPRANOLOL HYDROCHLORIDE
     Indication: Product used for unknown indication
     Dosage: UNK
     Route: 065

REACTIONS (9)
  - Hypogammaglobulinaemia [Unknown]
  - Tremor [Unknown]
  - Skin lesion [Unknown]
  - B-cell small lymphocytic lymphoma [Unknown]
  - Lymphocyte count increased [Unknown]
  - Selective IgM immunodeficiency [Unknown]
  - Sinusitis [Unknown]
  - Hypertension [Unknown]
  - Drug intolerance [Unknown]
